FAERS Safety Report 9839851 (Version 1)
Quarter: 2014Q1

REPORT INFORMATION
  Report Type: Spontaneous
  Country: MX (occurrence: MX)
  Receive Date: 20140124
  Receipt Date: 20140124
  Transmission Date: 20141002
  Serious: Yes (Other)
  Sender: FDA-Public Use
  Company Number: PHHY2014MX006697

PATIENT
  Age: 85 Year
  Sex: Female

DRUGS (4)
  1. EXFORGE HCT [Suspect]
     Indication: HYPERTENSION
     Dosage: 1 DF, (VALS 320 MG, AMLO 10 MG , HYDR 25 MG) DAILY
     Route: 048
     Dates: start: 20110116, end: 20140115
  2. CO-DIOVAN [Concomitant]
     Indication: HYPERTENSION
     Dosage: 1 DF, (VALS 80MG, HYDR 12.5 MG) 1 TABLET IN MORNING AND 1 TABLET AT NIGHT, DAILY
     Route: 048
     Dates: start: 20140115
  3. AMICIL//AMIKACIN SULFATE [Concomitant]
     Dosage: 1 UKN, DAILY
  4. ASPIRIN PROTECT [Concomitant]
     Dosage: UNK UKN, UNK

REACTIONS (5)
  - Gallbladder disorder [Unknown]
  - Burning sensation [Recovered/Resolved]
  - Oedema peripheral [Recovered/Resolved]
  - Chest pain [Recovered/Resolved]
  - Pain [Recovered/Resolved]
